FAERS Safety Report 20085958 (Version 2)
Quarter: 2021Q4

REPORT INFORMATION
  Report Type: Spontaneous
  Country: FR (occurrence: FR)
  Receive Date: 20211118
  Receipt Date: 20211209
  Transmission Date: 20220304
  Serious: Yes (Other)
  Sender: FDA-Public Use
  Company Number: FR-ZAMBON-202102871FRA

PATIENT
  Sex: Male

DRUGS (2)
  1. IVERMECTIN [Suspect]
     Active Substance: IVERMECTIN
     Indication: Product used for unknown indication
     Dosage: UNK
     Route: 065
     Dates: start: 20210915
  2. BENZYL BENZOATE [Suspect]
     Active Substance: BENZYL BENZOATE
     Indication: Product used for unknown indication
     Dosage: EMULSION FOR SKIN APPLICATION
     Route: 065
     Dates: start: 20210915

REACTIONS (1)
  - Nicotinic acid deficiency [Recovering/Resolving]
